FAERS Safety Report 6273072-X (Version None)
Quarter: 2009Q3

REPORT INFORMATION
  Report Type: 
  Country: None (occurrence: None)
  Receive Date: 20090715
  Receipt Date: 20090715
  Transmission Date: 20100115
  Serious: Yes (Hospitalization)
  Sender: FDA-Public Use
  Company Number: None

PATIENT
  Sex: Male
  Weight: 74 kg

DRUGS (10)
  1. CYTARABINE [Suspect]
     Dosage: 2050 MG
  2. DEXAMETHASONE [Suspect]
     Dosage: 100 MG
  3. ETOPOSIDE [Suspect]
     Dosage: 320 MG
  4. G-CSF (FILGRASTIM, AMGEN) [Suspect]
     Dosage: 4320 MCG
  5. IFOSFAMIDE [Suspect]
     Dosage: 8000 MG
  6. LEUCOVORIN CALCIUM [Suspect]
     Dosage: 80 MG
  7. MESNA [Suspect]
     Dosage: 6000 MG
  8. METHOTREXATE [Suspect]
     Dosage: 3030 MG
  9. RITUXIMAB (MOAB C2B8 ANTI CD20, CHIMERIC) [Suspect]
     Dosage: 800 MG
  10. VINCRISTINE SULFATE [Suspect]
     Dosage: 2 MG

REACTIONS (21)
  - BACK PAIN [None]
  - BACTERIAL INFECTION [None]
  - BLOOD DISORDER [None]
  - CATHETER RELATED INFECTION [None]
  - CHEST PAIN [None]
  - CHILLS [None]
  - CONSTIPATION [None]
  - DERMATITIS CONTACT [None]
  - DYSPHAGIA [None]
  - EPISTAXIS [None]
  - FOLLICULITIS [None]
  - GENITAL HERPES [None]
  - HAEMOGLOBIN DECREASED [None]
  - HAEMORRHOIDAL HAEMORRHAGE [None]
  - HICCUPS [None]
  - MUCOSAL INFLAMMATION [None]
  - MUSCULOSKELETAL CHEST PAIN [None]
  - NEUTROPHIL COUNT DECREASED [None]
  - PLATELET COUNT DECREASED [None]
  - PYREXIA [None]
  - WHITE BLOOD CELL COUNT DECREASED [None]
